FAERS Safety Report 9041094 (Version 1)
Quarter: 2013Q1

REPORT INFORMATION
  Report Type: Spontaneous
  Country: US (occurrence: None)
  Receive Date: 20130124
  Receipt Date: 20130124
  Transmission Date: 20140127
  Serious: Yes (Hospitalization)
  Sender: FDA-Public Use
  Company Number: None

PATIENT
  Age: 60 Year
  Sex: Male
  Weight: 74.84 kg

DRUGS (1)
  1. METHYLPREDNISOLONE [Suspect]
     Indication: CONSTIPATION
     Dates: start: 20121127, end: 20121130

REACTIONS (2)
  - Weight decreased [None]
  - Vomiting [None]
